FAERS Safety Report 8118420-0 (Version None)
Quarter: 2012Q1

REPORT INFORMATION
  Report Type: 
  Country: None (occurrence: None)
  Receive Date: 20120207
  Receipt Date: 20120130
  Transmission Date: 20120608
  Serious: Yes (Hospitalization, Other)
  Sender: FDA-Public Use
  Company Number: FR-JNJFOC-20120107463

PATIENT
  Sex: Female
  Weight: 38.7 kg

DRUGS (3)
  1. RISPERDAL [Suspect]
     Indication: HALLUCINATION
     Route: 048
     Dates: start: 20111203, end: 20111205
  2. LUDEAL [Concomitant]
     Indication: CONTRACEPTION
     Route: 048
  3. FORLAX [Concomitant]
     Indication: CONSTIPATION
     Route: 048

REACTIONS (6)
  - HYPERHIDROSIS [None]
  - MALAISE [None]
  - BLOOD PRESSURE DECREASED [None]
  - PYREXIA [None]
  - AGITATION [None]
  - HEART RATE INCREASED [None]
